FAERS Safety Report 15860766 (Version 1)
Quarter: 2019Q1

REPORT INFORMATION
  Report Type: Spontaneous
  Country: US (occurrence: US)
  Receive Date: 20190124
  Receipt Date: 20190124
  Transmission Date: 20190417
  Serious: No
  Sender: FDA-Public Use
  Company Number: US-TORRENT-00006923

PATIENT
  Sex: Female
  Weight: 69 kg

DRUGS (4)
  1. POTASSIUM [Concomitant]
     Active Substance: POTASSIUM
     Indication: BLOOD POTASSIUM DECREASED
     Dosage: PO, ONE TABLET EVERYDAY
     Route: 048
  2. DULOXETINE. [Suspect]
     Active Substance: DULOXETINE
     Indication: RESTLESSNESS
     Dosage: DELAYED-RELEASE CAPSULES, ONE CAPSULE AT NIGHT, TAKING THE CAPSULES FOR FOUR?WEEKS
  3. ELAVIL [Concomitant]
     Active Substance: AMITRIPTYLINE HYDROCHLORIDE
     Indication: RESTLESSNESS
     Dosage: ONE AT NIGHT
  4. GABAPENTIN. [Concomitant]
     Active Substance: GABAPENTIN
     Indication: BACK PAIN
     Dosage: PO, ONE TABLET FOUR TIMES A DAY
     Route: 048

REACTIONS (3)
  - Swelling face [Not Recovered/Not Resolved]
  - Peripheral swelling [Not Recovered/Not Resolved]
  - Eye swelling [Not Recovered/Not Resolved]
